FAERS Safety Report 24022510 (Version 2)
Quarter: 2024Q3

REPORT INFORMATION
  Report Type: Report from Study
  Country: DE (occurrence: DE)
  Receive Date: 20240627
  Receipt Date: 20240710
  Transmission Date: 20241017
  Serious: No
  Sender: ROCHE
  Company Number: DE-ROCHE-3496185

PATIENT
  Age: 87 Year
  Sex: Female

DRUGS (1)
  1. FARICIMAB [Suspect]
     Active Substance: FARICIMAB
     Indication: Neovascular age-related macular degeneration
     Dosage: ON 17/JAN/2024, RECEIVED MOST RECENT DOSE OF 6 MG PRIOR TO AE.?DOSE CONCENTRATION 120 MG/ML AND DOSE
     Route: 050
     Dates: start: 20240117

REACTIONS (1)
  - Corneal erosion [Recovered/Resolved]

NARRATIVE: CASE EVENT DATE: 20240118
